FAERS Safety Report 12640681 (Version 2)
Quarter: 2016Q3

REPORT INFORMATION
  Report Type: Spontaneous
  Country: FR (occurrence: FR)
  Receive Date: 20160810
  Receipt Date: 20160926
  Transmission Date: 20161109
  Serious: Yes (Death)
  Sender: FDA-Public Use
  Company Number: FR-TEVA-681608ISR

PATIENT
  Age: 90 Year
  Sex: Male

DRUGS (1)
  1. FUROSEMIDE TEVA 500 MG [Suspect]
     Active Substance: FUROSEMIDE
     Route: 065

REACTIONS (1)
  - Renal failure [Fatal]
